FAERS Safety Report 6423570-0 (Version None)
Quarter: 2009Q4

REPORT INFORMATION
  Report Type: 
  Country: None (occurrence: None)
  Receive Date: 20091030
  Receipt Date: 20091030
  Transmission Date: 20100525
  Serious: Yes (Hospitalization)
  Sender: FDA-Public Use
  Company Number: None

PATIENT
  Age: 23 Year
  Sex: Female
  Weight: 47.6277 kg

DRUGS (1)
  1. MIRENA [Suspect]
     Indication: CONTRACEPTION
     Dosage: 1 PLASTIC IUD LASTS 5 YEARS INTRA-UTERINE
     Route: 015
     Dates: start: 20090512, end: 20090817

REACTIONS (6)
  - ABDOMINAL DISTENSION [None]
  - ANXIETY [None]
  - FATIGUE [None]
  - HAEMORRHAGE [None]
  - MUSCLE SPASMS [None]
  - PAIN [None]
